FAERS Safety Report 4770790-7 (Version None)
Quarter: 2005Q3

REPORT INFORMATION
  Report Type: 
  Country: None (occurrence: None)
  Receive Date: 20050914
  Receipt Date: 20050914
  Transmission Date: 20060218
  Serious: Yes (Life-Threatening, Hospitalization)
  Sender: FDA-Public Use
  Company Number: None

PATIENT
  Age: 63 Year
  Sex: Male

DRUGS (6)
  1. LOTENSIN [Suspect]
     Indication: CORONARY ARTERY ATHEROSCLEROSIS
     Dosage: PO
     Route: 048
  2. LOTENSIN [Suspect]
     Indication: HYPERTENSION
     Dosage: PO
     Route: 048
  3. ASPIRIN [Concomitant]
  4. SIMVASTATIN [Concomitant]
  5. EZETIMIBE [Concomitant]
  6. DILTIAZEM [Concomitant]

REACTIONS (2)
  - ANGIONEUROTIC OEDEMA [None]
  - CHEST DISCOMFORT [None]
